FAERS Safety Report 8943235 (Version 1)
Quarter: 2012Q4

REPORT INFORMATION
  Report Type: 
  Country: US (occurrence: US)
  Receive Date: 20121121
  Receipt Date: 20121121
  Transmission Date: 20130627
  Serious: Yes (Death)
  Sender: FDA-Public Use
  Company Number: US-ASTELLAS-CID000000002083248

PATIENT
  Sex: Male

DRUGS (1)
  1. TARCEVA [Suspect]
     Indication: HEAD AND NECK CANCER
     Route: 065
     Dates: start: 20090925, end: 20100430

REACTIONS (1)
  - Head and neck cancer [Fatal]
